FAERS Safety Report 12350968 (Version 1)
Quarter: 2016Q2

REPORT INFORMATION
  Report Type: Spontaneous
  Country: US (occurrence: US)
  Receive Date: 20160419
  Receipt Date: 20160419
  Transmission Date: 20160815
  Serious: Yes (Death)
  Sender: FDA-Public Use
  Company Number: US-MALLINCKRODT-T201601293

PATIENT

DRUGS (2)
  1. ALBUTEROL. [Concomitant]
     Active Substance: ALBUTEROL
     Dosage: IN NSS VIA THE AEROGEN NEBULIZER
     Dates: start: 20160404
  2. INOMAX [Suspect]
     Active Substance: NITRIC OXIDE
     Indication: PERSISTENT FOETAL CIRCULATION
     Dosage: 10 PPM, CONTINUOUS
     Dates: start: 20160330, end: 20160405

REACTIONS (2)
  - Off label use [Unknown]
  - Death neonatal [Fatal]

NARRATIVE: CASE EVENT DATE: 20160330
